FAERS Safety Report 15757582 (Version 1)
Quarter: 2018Q4

REPORT INFORMATION
  Report Type: Report from Study
  Country: None (occurrence: DK)
  Receive Date: 20181224
  Receipt Date: 20181224
  Transmission Date: 20190205
  Serious: Yes (Death, Hospitalization)
  Sender: FDA-Public Use
  Company Number: DK-UNICHEM PHARMACEUTICALS (USA) INC-UCM201812-000360

PATIENT
  Age: 63 Year
  Sex: Female

DRUGS (3)
  1. AMLODIPINE [Suspect]
     Active Substance: AMLODIPINE BESYLATE
     Dosage: 425 MG
  2. METOPROLOL. [Suspect]
     Active Substance: METOPROLOL
     Dosage: 4250 MG
  3. ENALAPRIL [Suspect]
     Active Substance: ENALAPRIL

REACTIONS (5)
  - Cardiotoxicity [Fatal]
  - Anuria [Not Recovered/Not Resolved]
  - Intentional overdose [Fatal]
  - Coma [Not Recovered/Not Resolved]
  - Bradycardia [Not Recovered/Not Resolved]
